FAERS Safety Report 25630073 (Version 1)
Quarter: 2025Q3

REPORT INFORMATION
  Report Type: Spontaneous
  Country: US (occurrence: US)
  Receive Date: 20250801
  Receipt Date: 20250801
  Transmission Date: 20251021
  Serious: No
  Sender: GLENMARK
  Company Number: US-GLENMARK PHARMACEUTICALS-2024GMK092947

PATIENT

DRUGS (2)
  1. NYSTATIN\TRIAMCINOLONE ACETONIDE [Suspect]
     Active Substance: NYSTATIN\TRIAMCINOLONE ACETONIDE
     Indication: Cutaneous somatic symptom disorder
     Dosage: UNK, OD, ONCE A DAY
     Route: 061
  2. NYSTATIN\TRIAMCINOLONE ACETONIDE [Suspect]
     Active Substance: NYSTATIN\TRIAMCINOLONE ACETONIDE
     Indication: Pruritus

REACTIONS (5)
  - Drug effective for unapproved indication [Unknown]
  - Product dose omission in error [Unknown]
  - Poor quality product administered [Unknown]
  - Product container issue [Unknown]
  - Product packaging issue [Unknown]
